FAERS Safety Report 25610070 (Version 2)
Quarter: 2025Q3

REPORT INFORMATION
  Report Type: Spontaneous
  Country: US (occurrence: US)
  Receive Date: 20250728
  Receipt Date: 20250805
  Transmission Date: 20251021
  Serious: Yes (Hospitalization, Other)
  Sender: AUROBINDO
  Company Number: US-AUROBINDO-AUR-APL-2025-037546

PATIENT
  Age: 45 Year
  Sex: Male

DRUGS (3)
  1. BACLOFEN [Suspect]
     Active Substance: BACLOFEN
     Indication: Multiple sclerosis
     Route: 037
  2. BACLOFEN [Suspect]
     Active Substance: BACLOFEN
     Route: 037
  3. BACLOFEN [Suspect]
     Active Substance: BACLOFEN
     Route: 048

REACTIONS (14)
  - Toxicity to various agents [Unknown]
  - Mental status changes [Recovered/Resolved]
  - Respiratory failure [Unknown]
  - Hypertension [Unknown]
  - Electrocardiogram QT prolonged [Recovered/Resolved]
  - Tachypnoea [Unknown]
  - Respiratory acidosis [Unknown]
  - Ventricular tachycardia [Unknown]
  - Bradycardia [Unknown]
  - Cardiac arrest [Unknown]
  - Paroxysmal sympathetic hyperactivity [Unknown]
  - Cardiomyopathy [Unknown]
  - Vasoconstriction [Unknown]
  - Vascular occlusion [Unknown]
